FAERS Safety Report 7027925-5 (Version None)
Quarter: 2010Q4

REPORT INFORMATION
  Report Type: 
  Country: None (occurrence: None)
  Receive Date: 20101005
  Receipt Date: 20100902
  Transmission Date: 20110411
  Serious: No
  Sender: FDA-Public Use
  Company Number: US-BAYER-201026136NA

PATIENT
  Age: 27 Year
  Sex: Female

DRUGS (1)
  1. MIRENA [Suspect]
     Indication: CONTRACEPTION
     Dosage: FREQUENCY: CONTINUOUS. MIRENA BENT WHEN THE DOCTOR ATTEMPTED TO INSERT IT
     Route: 015
     Dates: start: 20100623, end: 20100623

REACTIONS (1)
  - PROCEDURAL PAIN [None]
